FAERS Safety Report 11276003 (Version 3)
Quarter: 2015Q4

REPORT INFORMATION
  Report Type: Spontaneous
  Country: BR (occurrence: BR)
  Receive Date: 20150716
  Receipt Date: 20151207
  Transmission Date: 20160304
  Serious: Yes (Hospitalization)
  Sender: FDA-Public Use
  Company Number: BR-ELI_LILLY_AND_COMPANY-BR201507002626

PATIENT
  Age: 65 Year
  Sex: Female

DRUGS (2)
  1. FRONTAL [Concomitant]
     Active Substance: ALPRAZOLAM
     Dosage: UNK, UNKNOWN
     Route: 065
  2. ZYPREXA [Suspect]
     Active Substance: OLANZAPINE
     Indication: PRODUCT USED FOR UNKNOWN INDICATION
     Dosage: 5 MG, EACH EVENING
     Route: 048

REACTIONS (4)
  - Chromaturia [Unknown]
  - Feeling abnormal [Unknown]
  - Conjunctivitis [Unknown]
  - Renal neoplasm [Recovered/Resolved]

NARRATIVE: CASE EVENT DATE: 201505
